FAERS Safety Report 18177080 (Version 1)
Quarter: 2020Q3

REPORT INFORMATION
  Report Type: Spontaneous
  Country: US (occurrence: US)
  Receive Date: 20200820
  Receipt Date: 20200820
  Transmission Date: 20201103
  Serious: No
  Sender: FDA-Public Use
  Company Number: US-AIMMUNE THERAPEUTICS, INC.-2020AIM00215

PATIENT

DRUGS (2)
  1. PALFORZIA [Suspect]
     Active Substance: PEANUT
     Dosage: INITIAL DOSE
  2. PALFORZIA [Suspect]
     Active Substance: PEANUT
     Dosage: 6 MG

REACTIONS (1)
  - Intentional product misuse [Unknown]
